FAERS Safety Report 9350745 (Version 1)
Quarter: 2013Q2

REPORT INFORMATION
  Report Type: Spontaneous
  Country: NL (occurrence: NL)
  Receive Date: 20130617
  Receipt Date: 20130617
  Transmission Date: 20140414
  Serious: No
  Sender: FDA-Public Use
  Company Number: PHHY2010NL60374

PATIENT
  Age: 34 Year
  Sex: Female

DRUGS (6)
  1. ZOMETA [Suspect]
     Indication: BREAST CANCER METASTATIC
     Dosage: 4 MG/100ML 1 X PER 28 DAYS
     Dates: start: 20100429
  2. ZOMETA [Suspect]
     Dosage: 4 MG/100ML 1 X PER 28 DAYS
     Dates: start: 20100726
  3. ZOMETA [Suspect]
     Dosage: 4 MG/100ML 1 X PER 28 DAYS
     Dates: start: 20121101
  4. ZOMETA [Suspect]
     Dosage: 4 MG/100ML, ONCE EVERY 4 WEEKS
  5. ZOMETA [Suspect]
     Dosage: 4 MG/100ML, ONCE EVERY 4 WEEKS
     Dates: start: 20100429
  6. ZOMETA [Suspect]
     Dosage: 4 MG/100ML, ONCE EVERY 4 WEEKS
     Dates: start: 20130426

REACTIONS (4)
  - Tooth disorder [Unknown]
  - Osteitis [Not Recovered/Not Resolved]
  - Jaw disorder [Unknown]
  - Exposed bone in jaw [Unknown]
